FAERS Safety Report 7089772-8 (Version None)
Quarter: 2010Q4

REPORT INFORMATION
  Report Type: 
  Country: None (occurrence: None)
  Receive Date: 20101108
  Receipt Date: 20100927
  Transmission Date: 20110411
  Serious: No
  Sender: FDA-Public Use
  Company Number: US-ABBOTT-10P-163-0673700-00

PATIENT
  Sex: Male
  Weight: 113.5 kg

DRUGS (11)
  1. TRICOR [Suspect]
     Indication: BLOOD TRIGLYCERIDES INCREASED
     Dosage: UNKNOWN
     Dates: start: 20090701, end: 20100201
  2. GLYBURIDE [Concomitant]
     Indication: DIABETES MELLITUS
  3. JANUMET [Concomitant]
     Indication: DIABETES MELLITUS
     Dosage: 50/1000 MG, 2 IN 1 D
  4. SIMVASTATIN [Concomitant]
     Indication: BLOOD TRIGLYCERIDES INCREASED
  5. LISINOPRIL [Concomitant]
     Indication: BLOOD TRIGLYCERIDES INCREASED
     Dosage: 20/12.5, 1 IN 1 D
  6. METOPROLOL [Concomitant]
     Indication: CORONARY ARTERY BYPASS
  7. ARICEPT [Concomitant]
     Indication: DEMENTIA ALZHEIMER'S TYPE
  8. BYETTA [Concomitant]
     Indication: DIABETES MELLITUS
  9. FLOMAX [Concomitant]
     Indication: PROSTATOMEGALY
  10. AVODART [Concomitant]
     Indication: PROSTATOMEGALY
  11. FINASTERIDE [Concomitant]
     Indication: PROSTATOMEGALY

REACTIONS (1)
  - DRUG INEFFECTIVE [None]
